FAERS Safety Report 6760947-8 (Version None)
Quarter: 2010Q2

REPORT INFORMATION
  Report Type: 
  Country: None (occurrence: None)
  Receive Date: 20100604
  Receipt Date: 20100528
  Transmission Date: 20101027
  Serious: Yes (Hospitalization)
  Sender: FDA-Public Use
  Company Number: 2010SP000418

PATIENT
  Age: 59 Year
  Sex: Female
  Weight: 52.7 kg

DRUGS (8)
  1. CICLESONIDE HFA [Suspect]
     Indication: RHINITIS PERENNIAL
     Dosage: 160UG; INHALATION
     Route: 055
     Dates: start: 20091021
  2. PREMARIN [Concomitant]
  3. ACIPHEX [Concomitant]
  4. MAXALT [Concomitant]
  5. HYDROCORTISONE [Concomitant]
  6. TYLENOL [Concomitant]
  7. IBUPROFEN [Concomitant]
  8. SUDAFED 12 HOUR [Concomitant]

REACTIONS (2)
  - BLADDER PROLAPSE [None]
  - RECTAL PROLAPSE [None]
